FAERS Safety Report 10034943 (Version 1)
Quarter: 2014Q1

REPORT INFORMATION
  Report Type: Spontaneous
  Country: US (occurrence: None)
  Receive Date: 20140306
  Receipt Date: 20140306
  Transmission Date: 20141002
  Serious: Yes (Other)
  Sender: FDA-Public Use
  Company Number: 163-21880-13100715

PATIENT
  Age: 77 Year
  Sex: Female
  Weight: 49.9 kg

DRUGS (9)
  1. REVLIMID (LENALIDOMIDE) (15 MILLIGRAM, CAPSULES) [Suspect]
     Indication: PLASMA CELL MYELOMA
     Route: 048
     Dates: start: 20120119, end: 2012
  2. ACYCLOVIR [Concomitant]
  3. MULTIVITAMINS [Concomitant]
  4. CO Q-10 (UBIDECARENONE) [Concomitant]
  5. BABY ASPIRIN [Concomitant]
  6. PREDNISONE [Concomitant]
  7. ZOMETA [Concomitant]
  8. VELCADE (BORTEZOMIB) [Concomitant]
  9. VICODIN [Concomitant]

REACTIONS (3)
  - Abdominal distension [None]
  - Weight decreased [None]
  - Muscle spasms [None]
